FAERS Safety Report 5711518-3 (Version None)
Quarter: 2008Q2

REPORT INFORMATION
  Report Type: 
  Country: None (occurrence: None)
  Receive Date: 20080421
  Receipt Date: 20080407
  Transmission Date: 20081010
  Serious: Yes (Hospitalization, Other)
  Sender: FDA-Public Use
  Company Number: US-BRISTOL-MYERS SQUIBB COMPANY-14150619

PATIENT
  Age: 44 Year
  Sex: Male

DRUGS (7)
  1. PRINZIDE [Suspect]
     Route: 048
  2. NADOLOL [Suspect]
  3. LUNESTA [Suspect]
     Dosage: 2 WEEK
  4. NORVASC [Suspect]
  5. LEXAPRO [Concomitant]
  6. NEXIUM [Concomitant]
  7. ALLOPURINOL [Concomitant]

REACTIONS (4)
  - FATIGUE [None]
  - NEPHRITIS INTERSTITIAL [None]
  - ORAL INTAKE REDUCED [None]
  - RENAL TUBULAR NECROSIS [None]
